FAERS Safety Report 5262277-2 (Version None)
Quarter: 2007Q1

REPORT INFORMATION
  Report Type: 
  Country: None (occurrence: None)
  Receive Date: 20070308
  Receipt Date: 20070308
  Transmission Date: 20070707
  Serious: Yes (Life-Threatening)
  Sender: FDA-Public Use
  Company Number: None

PATIENT
  Sex: Male
  Weight: 81.1939 kg

DRUGS (5)
  1. FAZACLO 100MG ALAMO [Suspect]
     Indication: BIPOLAR DISORDER
     Dosage: 700MG -TITRATED DOSE- DAILY PO
     Route: 048
     Dates: start: 20061221, end: 20070209
  2. FAZACLO 100MG ALAMO [Suspect]
     Indication: SCHIZOAFFECTIVE DISORDER
     Dosage: 700MG -TITRATED DOSE- DAILY PO
     Route: 048
     Dates: start: 20061221, end: 20070209
  3. LAMICTAL [Suspect]
     Dosage: 50MG -TITRATED DOSE- DAILY PO
     Route: 048
     Dates: start: 20070117, end: 20070214
  4. ATROPINE [Concomitant]
  5. DOCUSATE SODIUM [Concomitant]

REACTIONS (2)
  - NEUTROPHIL COUNT DECREASED [None]
  - WHITE BLOOD CELL COUNT DECREASED [None]
